FAERS Safety Report 5143540-2 (Version None)
Quarter: 2006Q4

REPORT INFORMATION
  Report Type: 
  Country: None (occurrence: None)
  Receive Date: 20061103
  Receipt Date: 20061026
  Transmission Date: 20070319
  Serious: Yes (Hospitalization)
  Sender: FDA-Public Use
  Company Number: CH-SANOFI-SYNTHELABO-A01200609140

PATIENT
  Age: 60 Year
  Sex: Male
  Weight: 85 kg

DRUGS (10)
  1. BETASERC [Concomitant]
     Indication: DRUG USE FOR UNKNOWN INDICATION
     Route: 048
  2. BELOC [Concomitant]
     Indication: DRUG USE FOR UNKNOWN INDICATION
     Route: 048
  3. NEURONTIN [Concomitant]
     Indication: DRUG USE FOR UNKNOWN INDICATION
     Route: 048
  4. PREDNISONE TAB [Concomitant]
     Indication: HEART TRANSPLANT
     Route: 048
  5. CELLCEPT [Concomitant]
     Indication: HEART TRANSPLANT
     Route: 048
  6. ASPIRIN [Concomitant]
     Indication: DRUG USE FOR UNKNOWN INDICATION
     Route: 048
     Dates: start: 20060228
  7. PANTOZOL [Interacting]
     Indication: DRUG USE FOR UNKNOWN INDICATION
     Route: 048
  8. SANDIMMUNE [Interacting]
     Indication: HEART TRANSPLANT
     Route: 048
  9. PLAVIX [Suspect]
     Indication: CORONARY ARTERY DISEASE
     Route: 048
     Dates: start: 20060228
  10. LESCOL [Interacting]
     Indication: CORONARY ARTERY DISEASE
     Route: 048
     Dates: start: 20060228, end: 20060328

REACTIONS (3)
  - DRUG INTERACTION [None]
  - INCORRECT DOSE ADMINISTERED [None]
  - RHABDOMYOLYSIS [None]
